FAERS Safety Report 6470462-7 (Version None)
Quarter: 2009Q4

REPORT INFORMATION
  Report Type: 
  Country: None (occurrence: None)
  Receive Date: 20091202
  Receipt Date: 20091202
  Transmission Date: 20100525
  Serious: Yes (Other)
  Sender: FDA-Public Use
  Company Number: None

PATIENT
  Age: 48 Year
  Sex: Male
  Weight: 65.7716 kg

DRUGS (1)
  1. LEVAQUIN [Suspect]
     Indication: SEPTIC SHOCK
     Dosage: 750MG 1 PER DAY PO
     Route: 048
     Dates: start: 20080718, end: 20081120

REACTIONS (4)
  - ABASIA [None]
  - MUSCULOSKELETAL PAIN [None]
  - PAIN [None]
  - WEIGHT BEARING DIFFICULTY [None]
